FAERS Safety Report 6569830-4 (Version None)
Quarter: 2010Q1

REPORT INFORMATION
  Report Type: 
  Country: None (occurrence: None)
  Receive Date: 20100204
  Receipt Date: 20100125
  Transmission Date: 20100710
  Serious: Yes (Other)
  Sender: FDA-Public Use
  Company Number: US-BAXTER-2010BH001729

PATIENT
  Age: 74 Year
  Sex: Female

DRUGS (1)
  1. MORPHINE SULFATE [Suspect]
     Indication: DRUG USE FOR UNKNOWN INDICATION
     Route: 042

REACTIONS (5)
  - ANXIETY [None]
  - DRUG INTOLERANCE [None]
  - HALLUCINATION [None]
  - INSOMNIA [None]
  - MENTAL STATUS CHANGES [None]
